FAERS Safety Report 9215571 (Version 2)
Quarter: 2013Q2

REPORT INFORMATION
  Report Type: Spontaneous
  Country: US (occurrence: US)
  Receive Date: 20130407
  Receipt Date: 20130422
  Transmission Date: 20140414
  Serious: Yes (Hospitalization, Other)
  Sender: FDA-Public Use
  Company Number: US-ALEXION-A201202354

PATIENT
  Age: 31 Year
  Sex: Female
  Weight: 103 kg

DRUGS (9)
  1. SOLIRIS 300MG [Suspect]
     Indication: HAEMOLYTIC URAEMIC SYNDROME
     Dosage: 900 MG, UNK
     Route: 042
     Dates: start: 20121115, end: 20121115
  2. XANAX [Concomitant]
     Dosage: 0.5 MG, QD
     Route: 048
  3. COMBIVENT [Concomitant]
     Dosage: UNK, BID
  4. ALBUTEROL [Concomitant]
     Dosage: UNK, BID
  5. FIORICET [Concomitant]
     Dosage: 50/325/40, TID
     Route: 048
  6. PHENERGAN [Concomitant]
     Dosage: 25 MG, QID
     Route: 048
  7. ZOFRAN [Concomitant]
     Dosage: 4 MG, QD
     Dates: end: 20130402
  8. PERCOCET [Concomitant]
  9. ULTRAM [Concomitant]

REACTIONS (6)
  - Abortion spontaneous [Unknown]
  - Haematemesis [Recovering/Resolving]
  - Abdominal pain [Recovering/Resolving]
  - Vomiting [Recovering/Resolving]
  - Nausea [Recovering/Resolving]
  - Exposure during pregnancy [Unknown]
